FAERS Safety Report 5209237-5 (Version None)
Quarter: 2007Q1

REPORT INFORMATION
  Report Type: 
  Country: None (occurrence: None)
  Receive Date: 20070116
  Receipt Date: 20070103
  Transmission Date: 20070707
  Serious: Yes (Other)
  Sender: FDA-Public Use
  Company Number: US-ELI_LILLY_AND_COMPANY-US200701000681

PATIENT
  Sex: Male

DRUGS (2)
  1. PROZAC [Suspect]
  2. GEODON [Concomitant]

REACTIONS (2)
  - AUTISM [None]
  - SCHIZOPHRENIA [None]
